FAERS Safety Report 7424310-9 (Version None)
Quarter: 2011Q2

REPORT INFORMATION
  Report Type: 
  Country: None (occurrence: None)
  Receive Date: 20110419
  Receipt Date: 20110414
  Transmission Date: 20111010
  Serious: Yes (Life-Threatening, Hospitalization, Other)
  Sender: FDA-Public Use
  Company Number: US-US-EMD SERONO, INC.-233101J10USA

PATIENT
  Sex: Female
  Weight: 77 kg

DRUGS (5)
  1. AVIANE-28 [Concomitant]
     Indication: CONTRACEPTION
     Route: 065
  2. REBIF [Suspect]
     Indication: MULTIPLE SCLEROSIS
     Route: 058
     Dates: start: 20080725
  3. CYMBALTA [Concomitant]
     Indication: NEUROPATHY PERIPHERAL
     Route: 065
  4. FLEXERIL [Concomitant]
     Indication: MUSCLE SPASMS
     Route: 065
  5. CORGARD [Concomitant]
     Indication: MIGRAINE
     Route: 065

REACTIONS (5)
  - PULMONARY EMBOLISM [None]
  - DEEP VEIN THROMBOSIS [None]
  - OPTIC NEURITIS [None]
  - THROMBOSIS [None]
  - ELECTROLYTE IMBALANCE [None]
